FAERS Safety Report 14184674 (Version 1)
Quarter: 2017Q4

REPORT INFORMATION
  Report Type: Spontaneous
  Country: US (occurrence: US)
  Receive Date: 20171114
  Receipt Date: 20171114
  Transmission Date: 20180321
  Serious: Yes (Other)
  Sender: FDA-Public Use
  Company Number: PHHY2017US163359

PATIENT
  Age: 79 Year
  Sex: Female

DRUGS (1)
  1. CLONAZEPAM. [Suspect]
     Active Substance: CLONAZEPAM
     Indication: PRODUCT USED FOR UNKNOWN INDICATION
     Dosage: 0.5 MG, QD
     Route: 065

REACTIONS (6)
  - Mental status changes [Recovering/Resolving]
  - Mutism [Recovering/Resolving]
  - Motor dysfunction [Recovering/Resolving]
  - Staring [Recovering/Resolving]
  - Withdrawal syndrome [Unknown]
  - Catatonia [Recovering/Resolving]
